FAERS Safety Report 16769411 (Version 3)
Quarter: 2019Q4

REPORT INFORMATION
  Report Type: Report from Study
  Country: IT (occurrence: IT)
  Receive Date: 20190903
  Receipt Date: 20191022
  Transmission Date: 20200122
  Serious: Yes (Death, Life-Threatening, Hospitalization, Other)
  Sender: FDA-Public Use
  Company Number: IT-BRISTOL-MYERS SQUIBB COMPANY-BMS-2019-084098

PATIENT
  Age: 58 Year
  Sex: Male

DRUGS (5)
  1. KABIVEN [Concomitant]
     Active Substance: AMINO ACIDS\ANHYDROUS DEXTROSE\CALCIUM CHLORIDE\MAGNESIUM SULFATE HEPTAHYDRATE\POTASSIUM CHLORIDE\SODIUM ACETATE\SODIUM GLYCEROPHOSPHATE ANHYDROUS\SOYBEAN OIL
     Indication: PRODUCT USED FOR UNKNOWN INDICATION
     Dosage: UNK
     Route: 065
  2. IPILIMUMAB [Suspect]
     Active Substance: IPILIMUMAB
     Indication: RENAL CELL CARCINOMA
     Dosage: 1 MILLIGRAM/KILOGRAM, Q3WK
     Route: 065
     Dates: start: 20190703, end: 20190703
  3. NIVOLUMAB [Suspect]
     Active Substance: NIVOLUMAB
     Indication: RENAL CELL CARCINOMA
     Dosage: 3 MILLIGRAM/KILOGRAM, Q3WK
     Route: 065
     Dates: start: 20190703, end: 20190703
  4. TRANEX [Concomitant]
     Active Substance: TRANEXAMIC ACID
     Indication: PRODUCT USED FOR UNKNOWN INDICATION
     Dosage: 6 GRAM
     Route: 042
     Dates: start: 20190725, end: 20190725
  5. OMEPRAZOLE. [Concomitant]
     Active Substance: OMEPRAZOLE
     Indication: PRODUCT USED FOR UNKNOWN INDICATION
     Dosage: UNK
     Route: 065

REACTIONS (2)
  - Gastric haemorrhage [Fatal]
  - Anaemia [Unknown]

NARRATIVE: CASE EVENT DATE: 20190725
